FAERS Safety Report 19273179 (Version 1)
Quarter: 2021Q2

REPORT INFORMATION
  Report Type: Spontaneous
  Country: US (occurrence: US)
  Receive Date: 20210519
  Receipt Date: 20210519
  Transmission Date: 20210717
  Serious: Yes (Other)
  Sender: FDA-Public Use
  Company Number: US-SA-2021SA161860

PATIENT
  Age: 67 Year
  Sex: Male

DRUGS (2)
  1. ZANTAC [Suspect]
     Active Substance: RANITIDINE HYDROCHLORIDE
     Indication: DYSPEPSIA
     Dosage: 300 MG, PRN
     Dates: start: 198901, end: 201501
  2. ZANTAC [Suspect]
     Active Substance: RANITIDINE HYDROCHLORIDE
     Indication: ABDOMINAL DISCOMFORT

REACTIONS (2)
  - Colorectal cancer stage II [Unknown]
  - Rectosigmoid cancer stage II [Unknown]

NARRATIVE: CASE EVENT DATE: 20180101
